FAERS Safety Report 5870512-2 (Version None)
Quarter: 2008Q3

REPORT INFORMATION
  Report Type: 
  Country: None (occurrence: None)
  Receive Date: 20080904
  Receipt Date: 20080714
  Transmission Date: 20090109
  Serious: Yes (Other)
  Sender: FDA-Public Use
  Company Number: US-PURDUE-USA_2008_0034496

PATIENT
  Sex: Male

DRUGS (7)
  1. OXYCONTIN [Suspect]
     Indication: SURGERY
     Dosage: UNK MG, SEE TEXT
     Route: 048
     Dates: start: 19970101, end: 20011201
  2. VALIUM [Concomitant]
     Indication: DRUG USE FOR UNKNOWN INDICATION
     Dosage: UNK MG, QID
     Route: 048
  3. SOMA [Concomitant]
     Indication: DRUG USE FOR UNKNOWN INDICATION
     Dosage: UNK MG, QID
     Route: 048
  4. METHADONE HCL [Concomitant]
     Indication: DRUG USE FOR UNKNOWN INDICATION
     Dosage: UNK MG, QID
     Route: 048
  5. PERCOCET [Concomitant]
     Indication: DRUG USE FOR UNKNOWN INDICATION
     Dosage: UNK MG, QID
     Route: 048
  6. AMBIEN [Concomitant]
     Indication: DRUG USE FOR UNKNOWN INDICATION
     Dosage: UNK MG, DAILY
     Route: 048
  7. DURAGESIC-100 [Concomitant]
     Indication: DRUG USE FOR UNKNOWN INDICATION
     Dosage: UNK, Q72H

REACTIONS (6)
  - DIARRHOEA [None]
  - DRUG DEPENDENCE [None]
  - MALAISE [None]
  - NERVOUSNESS [None]
  - SUICIDE ATTEMPT [None]
  - VOMITING [None]
